FAERS Safety Report 23317345 (Version 3)
Quarter: 2025Q1

REPORT INFORMATION
  Report Type: Spontaneous
  Country: US (occurrence: US)
  Receive Date: 20231219
  Receipt Date: 20250120
  Transmission Date: 20250409
  Serious: Yes (Hospitalization)
  Sender: ROCHE
  Company Number: US-ROCHE-3308263

PATIENT
  Age: 3 Year
  Sex: Male

DRUGS (2)
  1. HEMLIBRA [Suspect]
     Active Substance: EMICIZUMAB-KXWH
     Indication: Factor VIII deficiency
     Dosage: STRENGTH: 30 MG/ML
     Route: 058
     Dates: start: 202105
  2. HEMLIBRA [Suspect]
     Active Substance: EMICIZUMAB-KXWH
     Dosage: STRENGTH: 60 MG/0.4 ML
     Route: 058
     Dates: start: 202105

REACTIONS (4)
  - Haemorrhage [Recovered/Resolved]
  - Road traffic accident [Unknown]
  - Haemorrhage [Unknown]
  - Swelling face [Unknown]

NARRATIVE: CASE EVENT DATE: 20230223
